FAERS Safety Report 8327503-1 (Version None)
Quarter: 2012Q2

REPORT INFORMATION
  Report Type: 
  Country: None (occurrence: None)
  Receive Date: 20120502
  Receipt Date: 20120423
  Transmission Date: 20120825
  Serious: Yes (Hospitalization)
  Sender: FDA-Public Use
  Company Number: US-BAYER-2011-083252

PATIENT
  Age: 24 Year
  Sex: Female
  Weight: 65.76 kg

DRUGS (1)
  1. YAZ [Suspect]
     Dosage: UNK
     Route: 048
     Dates: start: 20070501, end: 20070601

REACTIONS (4)
  - PAIN [None]
  - EMOTIONAL DISTRESS [None]
  - INJURY [None]
  - PULMONARY EMBOLISM [None]
